FAERS Safety Report 18307572 (Version 2)
Quarter: 2020Q4

REPORT INFORMATION
  Report Type: Spontaneous
  Country: ME (occurrence: ME)
  Receive Date: 20200924
  Receipt Date: 20201119
  Transmission Date: 20210113
  Serious: Yes (Other)
  Sender: FDA-Public Use
  Company Number: ME-PFIZER INC-2020366393

PATIENT
  Age: 67 Year
  Sex: Female
  Weight: 63 kg

DRUGS (8)
  1. CARDIOPIRIN [Concomitant]
     Active Substance: ASPIRIN
     Dosage: 75 MG, DAILY
  2. IBRANCE [Suspect]
     Active Substance: PALBOCICLIB
     Dosage: 100 MG, CYCLIC: DAILY FOR 21 DAYS, THEN 7 DAYS BREAK
     Route: 048
     Dates: start: 20201102
  3. FASLODEX [Concomitant]
     Active Substance: FULVESTRANT
     Indication: BREAST CANCER METASTATIC
     Dosage: 500 MG
     Route: 030
     Dates: start: 202006
  4. IBRANCE [Suspect]
     Active Substance: PALBOCICLIB
     Indication: BREAST CANCER METASTATIC
     Dosage: 125 MG, CYCLIC: DAILY, DURING 21 DAYS, 7 DAYS PAUSE. FREQUENCY: 29 DAYS
     Route: 048
     Dates: start: 20200615, end: 20200917
  5. LORISTA [Concomitant]
     Active Substance: LOSARTAN POTASSIUM
     Dosage: 50 MG, DAILY; 1-2X/DAILY
  6. INDAPRES [Concomitant]
     Indication: HYPERTENSION
     Dosage: UNK, DAILY
  7. CONCOR [Concomitant]
     Active Substance: BISOPROLOL FUMARATE
     Dosage: 5 MG, DAILY
  8. ZOMETA [Concomitant]
     Active Substance: ZOLEDRONIC ACID
     Indication: BREAST CANCER METASTATIC
     Dosage: 40 MG, DAILY, 28 DAYS
     Route: 042
     Dates: start: 202006

REACTIONS (6)
  - COVID-19 [Recovered/Resolved]
  - Tumour pain [Unknown]
  - Leukopenia [Recovered/Resolved]
  - Neutropenia [Recovered/Resolved]
  - Fatigue [Unknown]
  - Chest pain [Unknown]

NARRATIVE: CASE EVENT DATE: 2020
